FAERS Safety Report 20719994 (Version 1)
Quarter: 2022Q2

REPORT INFORMATION
  Report Type: Spontaneous
  Country: CN (occurrence: CN)
  Receive Date: 20220418
  Receipt Date: 20220418
  Transmission Date: 20220720
  Serious: Yes (Other)
  Sender: FDA-Public Use
  Company Number: CN-PFIZER INC-202200560059

PATIENT
  Age: 29 Year
  Sex: Female

DRUGS (2)
  1. METHOTREXATE [Suspect]
     Active Substance: METHOTREXATE
     Indication: Ectopic pregnancy termination
     Dosage: 75 MG, 1X/DAY
     Route: 030
     Dates: start: 20220103, end: 20220103
  2. HERBALS [Suspect]
     Active Substance: HERBALS
     Indication: Ectopic pregnancy termination
     Dosage: 5 G, 1X/DAY
     Route: 048
     Dates: start: 20220111, end: 20220113

REACTIONS (4)
  - Pruritus [Recovering/Resolving]
  - Flushing [Recovering/Resolving]
  - Rash [Recovering/Resolving]
  - Off label use [Unknown]

NARRATIVE: CASE EVENT DATE: 20220103
